FAERS Safety Report 5765651-0 (Version None)
Quarter: 2008Q2

REPORT INFORMATION
  Report Type: 
  Country: None (occurrence: None)
  Receive Date: 20080605
  Receipt Date: 20080522
  Transmission Date: 20081010
  Serious: Yes (Hospitalization)
  Sender: FDA-Public Use
  Company Number: E3810-01894-SPO-JP

PATIENT
  Age: 50 Year
  Sex: Male

DRUGS (2)
  1. RABEPRAZOLE SODIUM [Suspect]
     Indication: HELICOBACTER INFECTION
     Dosage: 4 DOSAGE FORMS, 2 IN 1 D), ORAL
     Route: 048
  2. AMOXICILLIN TRIHYDRATE [Suspect]
     Indication: HELICOBACTER INFECTION
     Dosage: 2000 MG, 2 IN 1 D,

REACTIONS (5)
  - ANOREXIA [None]
  - C-REACTIVE PROTEIN INCREASED [None]
  - MALAISE [None]
  - WEIGHT DECREASED [None]
  - WHITE BLOOD CELL COUNT INCREASED [None]
